FAERS Safety Report 6370012-X (Version None)
Quarter: 2009Q3

REPORT INFORMATION
  Report Type: 
  Country: None (occurrence: None)
  Receive Date: 20090917
  Receipt Date: 20090904
  Transmission Date: 20100115
  Serious: Yes (Other)
  Sender: FDA-Public Use
  Company Number: MC200900348

PATIENT
  Age: 28 Year
  Sex: Male

DRUGS (5)
  1. ANGIOMAX [Suspect]
     Indication: ANTICOAGULANT THERAPY
     Dosage: 75 MG/KG, BOLUS, INTRAVENOUS; 1 MG/KG, HR, INTRAVENOUS
     Route: 040
     Dates: start: 20090903, end: 20090903
  2. ANGIOMAX [Suspect]
     Indication: ANTICOAGULANT THERAPY
     Dosage: 75 MG/KG, BOLUS, INTRAVENOUS; 1 MG/KG, HR, INTRAVENOUS
     Route: 040
     Dates: start: 20090903, end: 20090904
  3. COUMADIN [Suspect]
     Dosage: 17.5 MG
     Dates: start: 20090801, end: 20090801
  4. REFLUDAN [Suspect]
     Indication: ANTICOAGULANT THERAPY
  5. PHYTONADIONE [Concomitant]

REACTIONS (3)
  - HEPARIN-INDUCED THROMBOCYTOPENIA [None]
  - INTERNATIONAL NORMALISED RATIO INCREASED [None]
  - PLEURAL EFFUSION [None]
